FAERS Safety Report 14730632 (Version 2)
Quarter: 2018Q3

REPORT INFORMATION
  Report Type: Report from Study
  Country: GB (occurrence: GB)
  Receive Date: 20180406
  Receipt Date: 20180710
  Transmission Date: 20181010
  Serious: Yes (Death, Hospitalization)
  Sender: FDA-Public Use
  Company Number: PHHY2018GB059127

PATIENT
  Age: 63 Year
  Sex: Female

DRUGS (1)
  1. TRAMETINIB [Suspect]
     Active Substance: TRAMETINIB
     Indication: METASTATIC MALIGNANT MELANOMA
     Dosage: 2 MG, QD
     Route: 048
     Dates: start: 20170805, end: 20171109

REACTIONS (6)
  - Lip dry [Recovered/Resolved]
  - Death [Fatal]
  - Blood lactate dehydrogenase increased [Unknown]
  - Mucosal inflammation [Recovered/Resolved]
  - Dry mouth [Recovered/Resolved]
  - Lower respiratory tract infection [Unknown]

NARRATIVE: CASE EVENT DATE: 20170819
